FAERS Safety Report 23139650 (Version 1)
Quarter: 2023Q4

REPORT INFORMATION
  Report Type: Spontaneous
  Country: US (occurrence: None)
  Receive Date: 20231102
  Receipt Date: 20231102
  Transmission Date: 20240109
  Serious: Yes (Other)
  Sender: FDA-Public Use
  Company Number: None

PATIENT
  Age: 31 Year
  Sex: Female
  Weight: 44.1 kg

DRUGS (2)
  1. WINLEVI [Suspect]
     Active Substance: CLASCOTERONE
     Indication: Acne
     Dates: start: 20231005
  2. OMEPRAZOLE [Concomitant]
     Active Substance: OMEPRAZOLE

REACTIONS (11)
  - Amenorrhoea [None]
  - Abdominal distension [None]
  - Weight increased [None]
  - Depression [None]
  - Anxiety [None]
  - Asthenia [None]
  - Muscle spasms [None]
  - Constipation [None]
  - Pain [None]
  - Pain in extremity [None]
  - Hypothalamic pituitary adrenal axis suppression [None]

NARRATIVE: CASE EVENT DATE: 20231027
